FAERS Safety Report 4931578-7 (Version None)
Quarter: 2006Q1

REPORT INFORMATION
  Report Type: 
  Country: None (occurrence: None)
  Receive Date: 20060303
  Receipt Date: 20060221
  Transmission Date: 20060701
  Serious: Yes (Other)
  Sender: FDA-Public Use
  Company Number: US-JNJFOC-20060204834

PATIENT
  Sex: Male
  Weight: 22.68 kg

DRUGS (2)
  1. CONCERTA [Suspect]
     Route: 048
  2. CONCERTA [Suspect]
     Route: 048

REACTIONS (3)
  - AGITATION [None]
  - HOMICIDAL IDEATION [None]
  - PSYCHOMOTOR HYPERACTIVITY [None]
